FAERS Safety Report 6394024-5 (Version None)
Quarter: 2009Q4

REPORT INFORMATION
  Report Type: 
  Country: None (occurrence: None)
  Receive Date: 20091008
  Receipt Date: 20090924
  Transmission Date: 20100525
  Serious: Yes (Other)
  Sender: FDA-Public Use
  Company Number: PHHY2009GB18068

PATIENT
  Sex: Female

DRUGS (10)
  1. CLOZARIL [Suspect]
     Indication: SCHIZOPHRENIA
     Dosage: UNK
     Dates: start: 19960318, end: 19981201
  2. CLOZARIL [Suspect]
     Dosage: 400 MG TOTAL
     Dates: start: 19990105
  3. ALENDRONATE SODIUM [Concomitant]
  4. PRAVASTATIN [Concomitant]
     Indication: BLOOD CHOLESTEROL INCREASED
     Dosage: 40 MG, NOCTE
     Route: 048
  5. LANSOPRAZOLE [Concomitant]
     Indication: GASTROINTESTINAL DISORDER
     Dosage: 15 MG, QD
     Route: 048
  6. LACTULOSE [Concomitant]
     Indication: GASTROINTESTINAL DISORDER
     Dosage: 15 MLS ND
     Route: 048
  7. ROSGLITAZONE [Concomitant]
     Indication: DIABETES MELLITUS
     Dosage: BID
     Route: 048
  8. GAVISCON [Concomitant]
     Indication: GASTROINTESTINAL DISORDER
     Dosage: QD
     Route: 048
  9. ASPIRIN [Concomitant]
     Indication: CARDIAC DISORDER
     Dosage: 75 MG, QD
     Route: 048
  10. ANTIBIOTICS [Concomitant]
     Indication: LOWER RESPIRATORY TRACT INFECTION

REACTIONS (7)
  - ASTHENIA [None]
  - CASTLEMAN'S DISEASE [None]
  - DIZZINESS [None]
  - DYSSTASIA [None]
  - LOWER RESPIRATORY TRACT INFECTION [None]
  - NEUTROPENIA [None]
  - WHITE BLOOD CELL COUNT DECREASED [None]
